FAERS Safety Report 8789633 (Version 1)
Quarter: 2012Q4

REPORT INFORMATION
  Report Type: Spontaneous
  Country: US (occurrence: None)
  Receive Date: 20120910
  Receipt Date: 20120910
  Transmission Date: 20130627
  Serious: Yes (Life-Threatening)
  Sender: FDA-Public Use
  Company Number: None

PATIENT
  Age: 57 Year
  Sex: Female
  Weight: 85.73 kg

DRUGS (1)
  1. QNASL [Suspect]
     Indication: MULTIPLE ALLERGIES
     Dosage: 2 nasal aerosol sprays in each
     Dates: start: 20120806, end: 20120821

REACTIONS (19)
  - Chest discomfort [None]
  - Dyspnoea [None]
  - Muscle spasms [None]
  - Ear discomfort [None]
  - Visual impairment [None]
  - Parosmia [None]
  - Confusional state [None]
  - Impaired work ability [None]
  - Memory impairment [None]
  - Decreased appetite [None]
  - Chest pain [None]
  - Musculoskeletal chest pain [None]
  - Muscular weakness [None]
  - Balance disorder [None]
  - White blood cell count increased [None]
  - Fatigue [None]
  - Mood altered [None]
  - Muscle spasms [None]
  - Muscle spasms [None]
